FAERS Safety Report 15452826 (Version 2)
Quarter: 2018Q4

REPORT INFORMATION
  Report Type: Spontaneous
  Country: US (occurrence: US)
  Receive Date: 20181001
  Receipt Date: 20181017
  Transmission Date: 20190204
  Serious: Yes (Hospitalization)
  Sender: FDA-Public Use
  Company Number: US-VERTEX PHARMACEUTICALS-2018-005990

PATIENT
  Age: 16 Year
  Sex: Male

DRUGS (21)
  1. ORKAMBI [Suspect]
     Active Substance: IVACAFTOR\LUMACAFTOR
     Indication: CYSTIC FIBROSIS
     Dosage: 2 DOSAGE FORM (200/125 MG EACH), BID
     Route: 048
     Dates: start: 20171205
  2. LORATADINE. [Concomitant]
     Active Substance: LORATADINE
     Dosage: 5 MILLILITER, QD
     Route: 048
  3. MEPHYTON [Concomitant]
     Active Substance: PHYTONADIONE
     Dosage: 2.5 MG, TWICE IN A WEEK
     Route: 048
  4. SODIUM CHLORIDE. [Concomitant]
     Active Substance: SODIUM CHLORIDE
     Indication: COUGH
     Dosage: 4 MILLILITER, BID
     Route: 055
  5. MELATONIN [Concomitant]
     Active Substance: MELATONIN
     Dosage: 3 MG, QD
     Route: 048
  6. POLYETHYLENE GLYCOL [Concomitant]
     Active Substance: POLYETHYLENE GLYCOLS
     Dosage: 17 GRAM, QD
     Route: 048
  7. URSODIOL. [Concomitant]
     Active Substance: URSODIOL
     Dosage: 300 MG, BID
     Route: 048
  8. ALBUTEROL HFA [Concomitant]
     Active Substance: ALBUTEROL SULFATE
     Indication: COUGH
     Dosage: 2 PUFFS, BID
     Route: 055
  9. CHOLECALCIFEROL [Concomitant]
     Active Substance: CHOLECALCIFEROL
     Dosage: 4000 UT, QD
     Route: 048
  10. ENSURE [Concomitant]
     Active Substance: AMINO ACIDS\DEXTROSE\ELECTROLYTES NOS\SOYBEAN OIL\VITAMINS
     Dosage: 6 BOTTLES, QD
     Route: 048
  11. VITAMIN D                          /00107901/ [Concomitant]
     Active Substance: ERGOCALCIFEROL
  12. FLUTICASONE. [Concomitant]
     Active Substance: FLUTICASONE
  13. RANITIDINE. [Concomitant]
     Active Substance: RANITIDINE
     Dosage: 5 MILLILITER, BID
     Route: 048
  14. VENTOLIN HFA [Concomitant]
     Active Substance: ALBUTEROL SULFATE
  15. BACTRIM [Concomitant]
     Active Substance: SULFAMETHOXAZOLE\TRIMETHOPRIM
     Dosage: 20 MILLILITER, BID
     Route: 048
  16. ALBUTEROL                          /00139501/ [Concomitant]
     Active Substance: ALBUTEROL
     Indication: COUGH
     Dosage: 2.5 MG, BID
     Route: 055
  17. PHYTONADIONE. [Concomitant]
     Active Substance: PHYTONADIONE
  18. CREON [Concomitant]
     Active Substance: PANCRELIPASE AMYLASE\PANCRELIPASE LIPASE\PANCRELIPASE PROTEASE
     Dosage: 2 CAPS FORM BEFORE SNACKS AND 3  CAPS BEFORE MEALS
     Route: 048
  19. PULMOZYME [Concomitant]
     Active Substance: DORNASE ALFA
     Dosage: 2.5 MG, BID
     Route: 055
  20. TUMS                               /00193601/ [Concomitant]
     Active Substance: CALCIUM CARBONATE\MAGNESIUM CARBONATE\MAGNESIUM TRISILICATE
     Dosage: 1 DOSAGE FORM, BID
     Route: 048
  21. FLOVENT HFA [Concomitant]
     Active Substance: FLUTICASONE PROPIONATE
     Dosage: 2 PUFFS, BID
     Route: 055

REACTIONS (2)
  - Sinusitis [Unknown]
  - Infective pulmonary exacerbation of cystic fibrosis [Recovered/Resolved]

NARRATIVE: CASE EVENT DATE: 20180723
